FAERS Safety Report 9149731 (Version 1)
Quarter: 2013Q1

REPORT INFORMATION
  Report Type: Spontaneous
  Country: US (occurrence: None)
  Receive Date: 20130129
  Receipt Date: 20130129
  Transmission Date: 20140127
  Serious: Yes (Hospitalization)
  Sender: FDA-Public Use
  Company Number: 2013AP000418

PATIENT
  Age: 41 Year
  Sex: Male

DRUGS (2)
  1. TRAZODONE HYDROCHLORIDE [Suspect]
     Indication: INSOMNIA
  2. MIRTAZAPINE [Suspect]

REACTIONS (2)
  - Priapism [None]
  - Off label use [None]
